FAERS Safety Report 7878925-4 (Version None)
Quarter: 2011Q4

REPORT INFORMATION
  Report Type: 
  Country: None (occurrence: None)
  Receive Date: 20111101
  Receipt Date: 20111027
  Transmission Date: 20120403
  Serious: Yes (Other)
  Sender: FDA-Public Use
  Company Number: US-BAYER-2011-069704

PATIENT
  Age: 23 Year
  Sex: Female

DRUGS (1)
  1. MIRENA [Suspect]
     Indication: CONTRACEPTION
     Dosage: 20 ?G/D, CONT
     Route: 015
     Dates: start: 20110101, end: 20111001

REACTIONS (17)
  - RHEUMATOID ARTHRITIS [None]
  - RAYNAUD'S PHENOMENON [None]
  - ABDOMINAL PAIN [None]
  - SYSTEMIC LUPUS ERYTHEMATOSUS [None]
  - DYSPAREUNIA [None]
  - BACK PAIN [None]
  - MOOD ALTERED [None]
  - PAIN [None]
  - RASH GENERALISED [None]
  - MYALGIA [None]
  - WEIGHT LOSS POOR [None]
  - NASAL ULCER [None]
  - VASCULITIS [None]
  - MUSCLE SPASMS [None]
  - HOT FLUSH [None]
  - MOUTH ULCERATION [None]
  - HEADACHE [None]
